FAERS Safety Report 7216414-0 (Version None)
Quarter: 2011Q1

REPORT INFORMATION
  Report Type: 
  Country: None (occurrence: None)
  Receive Date: 20110107
  Receipt Date: 20101227
  Transmission Date: 20110831
  Serious: Yes (Hospitalization)
  Sender: FDA-Public Use
  Company Number: US-ALLERGAN-1016762US

PATIENT
  Age: 89 Year
  Sex: Female
  Weight: 72.562 kg

DRUGS (13)
  1. XALATAN [Suspect]
     Indication: GLAUCOMA
     Dosage: TWO TIMES DAILY
     Route: 047
  2. ARICEPT [Concomitant]
     Indication: CONFUSIONAL STATE
  3. LISINOPRIL [Concomitant]
     Indication: HYPERTENSION
     Dosage: 20 MG, BID
  4. HYDROCHLOROTHIAZIDE [Concomitant]
     Indication: HYPERTENSION
     Dosage: 25 MG, QD
     Route: 048
  5. PRAVASTATIN [Concomitant]
     Indication: BLOOD CHOLESTEROL INCREASED
     Dosage: 40 MG, QD
  6. ARICEPT [Concomitant]
     Indication: MEMORY IMPAIRMENT
     Dosage: 5 MG, QD
  7. AMLODIPINE [Concomitant]
     Indication: HYPERTENSION
     Dosage: 10 MG, QD
  8. ALPHAGAN [Suspect]
     Indication: EYE DISORDER
     Dosage: ONE TIME DAILY
     Route: 047
  9. TIMOLOL MALEATE [Suspect]
     Indication: EYE DISORDER
     Dosage: ONE TIME DAILY
     Route: 047
  10. CARVEDILOL [Concomitant]
     Indication: HYPERTENSION
     Dosage: 12.5 MG, BID
  11. TRAZODONE [Concomitant]
     Indication: INSOMNIA
     Dosage: 100 MG, PRN
  12. ALLOPURINOL [Concomitant]
     Indication: GOUT
     Dosage: 100 MG, BID
     Route: 048
  13. LEVOTHYROXINE SODIUM [Concomitant]
     Indication: PRODUCT USED FOR UNKNOWN INDICATION
     Dosage: 15 MG, QD

REACTIONS (1)
  - CEREBROVASCULAR ACCIDENT [None]
